FAERS Safety Report 25846712 (Version 1)
Quarter: 2025Q3

REPORT INFORMATION
  Report Type: Spontaneous
  Country: US (occurrence: None)
  Receive Date: 20250925
  Receipt Date: 20250925
  Transmission Date: 20251021
  Serious: Yes (Death, Hospitalization)
  Sender: FDA-CTU
  Company Number: None

PATIENT
  Age: 17 Year
  Sex: Male
  Weight: 97.8 kg

DRUGS (5)
  1. CALASPARGASE PEGOL-MKNL [Suspect]
     Active Substance: CALASPARGASE PEGOL-MKNL
     Dates: end: 20250906
  2. DEXAMETHASONE [Suspect]
     Active Substance: DEXAMETHASONE
     Dates: end: 20250918
  3. DOXORUBICIN HYDROCHLORIDE [Suspect]
     Active Substance: DOXORUBICIN HYDROCHLORIDE
     Dates: end: 20250905
  4. METHOTREXATE [Suspect]
     Active Substance: METHOTREXATE
     Dates: end: 20250912
  5. VINCRISTINE SULFATE [Suspect]
     Active Substance: VINCRISTINE SULFATE
     Dates: end: 20250912

REACTIONS (16)
  - General physical health deterioration [None]
  - Therapy interrupted [None]
  - Sepsis [None]
  - Thrombocytopenia [None]
  - Red blood cell transfusion [None]
  - Platelet transfusion [None]
  - Blood culture positive [None]
  - Stomatococcal infection [None]
  - Haemodynamic instability [None]
  - Deep vein thrombosis [None]
  - Cerebral haemorrhage [None]
  - Hypercoagulation [None]
  - Arterial thrombosis [None]
  - Venous thrombosis [None]
  - Hydrocephalus [None]
  - Cardiac arrest [None]

NARRATIVE: CASE EVENT DATE: 20250918
